FAERS Safety Report 7428801-6 (Version None)
Quarter: 2011Q2

REPORT INFORMATION
  Report Type: 
  Country: None (occurrence: None)
  Receive Date: 20110415
  Receipt Date: 20110415
  Transmission Date: 20111010
  Serious: No
  Sender: FDA-Public Use
  Company Number: None

PATIENT
  Sex: Male

DRUGS (1)
  1. LITHIUM CARBONATE [Suspect]
     Dosage: 300MG AM PO
     Route: 048
     Dates: start: 20100226, end: 20110414

REACTIONS (2)
  - GAIT DISTURBANCE [None]
  - ARTHROPATHY [None]
